FAERS Safety Report 9617422 (Version 1)
Quarter: 2013Q4

REPORT INFORMATION
  Report Type: Spontaneous
  Country: BR (occurrence: BR)
  Receive Date: 20131011
  Receipt Date: 20131011
  Transmission Date: 20140711
  Serious: Yes (Hospitalization, Other)
  Sender: FDA-Public Use
  Company Number: PHHY2013BR114367

PATIENT
  Sex: Female

DRUGS (2)
  1. EXELON PATCH [Suspect]
     Dosage: 9.5 MG ( ONE 18 MG/10CM2 PATCH)
     Route: 062
  2. EXELON PATCH [Suspect]
     Dosage: 13.3 MG, (ONE 27 MG/15 CM2 PATCH)
     Route: 062

REACTIONS (3)
  - Malaise [Unknown]
  - Heart rate decreased [Unknown]
  - Therapeutic response unexpected [Unknown]
